FAERS Safety Report 7694350-3 (Version None)
Quarter: 2011Q3

REPORT INFORMATION
  Report Type: 
  Country: None (occurrence: None)
  Receive Date: 20110819
  Receipt Date: 20110805
  Transmission Date: 20111222
  Serious: Yes (Hospitalization)
  Sender: FDA-Public Use
  Company Number: BR-SANOFI-AVENTIS-2011SA050564

PATIENT
  Sex: Male
  Weight: 83 kg

DRUGS (8)
  1. CLOPIDOGREL BISULFATE [Suspect]
     Indication: INFARCTION
     Route: 048
  2. LASIX [Concomitant]
     Dosage: 1 TABLET IN THE MORNING AND ONE TABLET AT 3:00 PM
     Route: 048
     Dates: start: 20000101
  3. LEVOTHYROXINE SODIUM [Concomitant]
     Indication: HYPOTHYROIDISM
     Route: 048
  4. ACETYLSALICYLIC ACID SRT [Concomitant]
     Route: 048
     Dates: start: 20000101
  5. ALLOPURINOL [Concomitant]
     Dosage: ONE TABLET AT 3:00 PM
     Route: 048
  6. CARVEDILOL [Concomitant]
     Dosage: 1 TABLET IN THE MORNING AND ONE TABLET AT NIGHT
     Route: 048
     Dates: start: 20000101
  7. SIMVASTATIN [Concomitant]
     Route: 048
     Dates: start: 20000101
  8. LOSARTAN [Concomitant]
     Dosage: 1 TABLET IN THE MORNING AND ONE TABLET AT NIGHT
     Route: 048
     Dates: start: 20000101

REACTIONS (6)
  - DYSPNOEA [None]
  - HEART RATE DECREASED [None]
  - PNEUMONIA [None]
  - CARDIAC ARREST [None]
  - COUGH [None]
  - DYSPHONIA [None]
